FAERS Safety Report 20127343 (Version 1)
Quarter: 2021Q4

REPORT INFORMATION
  Report Type: Spontaneous
  Country: FR (occurrence: FR)
  Receive Date: 20211129
  Receipt Date: 20211129
  Transmission Date: 20220303
  Serious: Yes (Hospitalization)
  Sender: FDA-Public Use
  Company Number: None

PATIENT
  Age: 8 Year
  Sex: Male
  Weight: 26.9 kg

DRUGS (9)
  1. VANCOMYCIN [Suspect]
     Active Substance: VANCOMYCIN
     Indication: Febrile bone marrow aplasia
     Dosage: 1100 MILLIGRAM, QD
     Route: 030
     Dates: start: 20210901, end: 20210909
  2. PIPERACILLIN [Suspect]
     Active Substance: PIPERACILLIN
     Indication: Febrile bone marrow aplasia
     Dosage: 2 GRAM, Q4D
     Route: 042
     Dates: start: 20210824, end: 20210909
  3. GLIVEC [Suspect]
     Active Substance: IMATINIB MESYLATE
     Indication: Product used for unknown indication
     Dosage: 300 MILLIGRAM, QD
     Route: 042
     Dates: start: 20210824, end: 20210902
  4. VIMPAT [Suspect]
     Active Substance: LACOSAMIDE
     Indication: Product used for unknown indication
     Dosage: 40 MILLIGRAM, QOD
     Route: 042
     Dates: start: 20210824, end: 20210909
  5. KEPPRA [Suspect]
     Active Substance: LEVETIRACETAM
     Indication: Product used for unknown indication
     Dosage: 400 MILLIGRAM, QOD
     Route: 042
     Dates: start: 20210824, end: 20210909
  6. BACTRIM [Concomitant]
     Active Substance: SULFAMETHOXAZOLE\TRIMETHOPRIM
     Dosage: UNK
  7. AMBISOME                           /00057501/ [Concomitant]
     Dosage: UNK
  8. AMBISOME                           /00057501/ [Concomitant]
     Dosage: UNK
  9. ACYCLOVIR [Concomitant]
     Active Substance: ACYCLOVIR
     Dosage: UNK

REACTIONS (2)
  - Renal failure [Not Recovered/Not Resolved]
  - Rash scarlatiniform [Not Recovered/Not Resolved]

NARRATIVE: CASE EVENT DATE: 20210909
